FAERS Safety Report 10148919 (Version 2)
Quarter: 2014Q2

REPORT INFORMATION
  Report Type: Spontaneous
  Country: US (occurrence: US)
  Receive Date: 20140502
  Receipt Date: 20140512
  Transmission Date: 20141212
  Serious: Yes (Hospitalization)
  Sender: FDA-Public Use
  Company Number: US-BIOGENIDEC-2014BI039376

PATIENT
  Age: 81 Year
  Sex: Female

DRUGS (6)
  1. AVONEX [Suspect]
     Indication: MULTIPLE SCLEROSIS
     Route: 030
  2. AVONEX [Suspect]
     Indication: MULTIPLE SCLEROSIS
     Route: 030
     Dates: start: 19990505
  3. AVONEX [Suspect]
     Indication: MULTIPLE SCLEROSIS
     Route: 030
     Dates: start: 20110331
  4. CITALOPRAM HYDROBROMIDE [Concomitant]
  5. BENICAR [Concomitant]
  6. DETROL [Concomitant]

REACTIONS (3)
  - Cerebrovascular accident [Unknown]
  - Pneumonia [Unknown]
  - Transient ischaemic attack [Unknown]
